FAERS Safety Report 8405724-7 (Version None)
Quarter: 2012Q2

REPORT INFORMATION
  Report Type: 
  Country: None (occurrence: None)
  Receive Date: 20120530
  Receipt Date: 20120530
  Transmission Date: 20120825
  Serious: Yes (Hospitalization)
  Sender: FDA-Public Use
  Company Number: None

PATIENT
  Age: 56 Year
  Sex: Male
  Weight: 80.9 kg

DRUGS (2)
  1. ZOLEDRONIC ACID [Suspect]
     Indication: MULTIPLE MYELOMA
     Dosage: 4 MG OTHER IV
     Route: 042
     Dates: start: 20090527, end: 20120205
  2. ZOLEDRONIC ACID [Suspect]
     Indication: OSTEOPOROSIS
     Dosage: 4 MG OTHER IV
     Route: 042
     Dates: start: 20090527, end: 20120205

REACTIONS (4)
  - VERBAL ABUSE [None]
  - DEPRESSION [None]
  - AGITATION [None]
  - OSTEONECROSIS OF JAW [None]
